FAERS Safety Report 9381587 (Version 1)
Quarter: 2013Q3

REPORT INFORMATION
  Report Type: Spontaneous
  Country: ES (occurrence: ES)
  Receive Date: 20130703
  Receipt Date: 20130703
  Transmission Date: 20140515
  Serious: Yes (Other)
  Sender: FDA-Public Use
  Company Number: ES-SANOFI-AVENTIS-2013SA064752

PATIENT
  Age: 66 Year
  Sex: Male

DRUGS (2)
  1. RIFATER [Suspect]
     Indication: PULMONARY TUBERCULOSIS
     Dosage: PHARMACEUTICAL FORM: 9
     Route: 048
     Dates: start: 20130424, end: 20130608
  2. SEPTRIN [Concomitant]
     Route: 048
     Dates: start: 20130424, end: 20130508

REACTIONS (3)
  - Hepatic cirrhosis [Recovering/Resolving]
  - Haematemesis [Recovering/Resolving]
  - Ascites [Recovering/Resolving]
